FAERS Safety Report 25421563 (Version 2)
Quarter: 2025Q2

REPORT INFORMATION
  Report Type: Report from Study
  Country: CA (occurrence: CA)
  Receive Date: 20250611
  Receipt Date: 20250623
  Transmission Date: 20250716
  Serious: No
  Sender: ABBVIE
  Company Number: CA-ABBVIE-6319517

PATIENT
  Sex: Female

DRUGS (2)
  1. SKYRIZI [Suspect]
     Active Substance: RISANKIZUMAB-RZAA
     Indication: Product used for unknown indication
     Route: 058
  2. SKYRIZI [Suspect]
     Active Substance: RISANKIZUMAB-RZAA
     Route: 058
     Dates: end: 20250422

REACTIONS (1)
  - Large intestinal stenosis [Unknown]
